FAERS Safety Report 19181277 (Version 1)
Quarter: 2021Q2

REPORT INFORMATION
  Report Type: Spontaneous
  Country: US (occurrence: US)
  Receive Date: 20210426
  Receipt Date: 20210426
  Transmission Date: 20210717
  Serious: No
  Sender: FDA-Public Use
  Company Number: US-MYLANLABS-2021M1024486

PATIENT
  Sex: Female

DRUGS (1)
  1. EPINEPHRINE INJECTION USP AUTO?INJECTOR [Suspect]
     Active Substance: EPINEPHRINE
     Indication: HYPERSENSITIVITY
     Dosage: 0.3 MILLIGRAM
     Route: 065

REACTIONS (3)
  - Product quality issue [Unknown]
  - Circumstance or information capable of leading to medication error [Unknown]
  - Liquid product physical issue [Unknown]
